FAERS Safety Report 7423971-8 (Version None)
Quarter: 2011Q2

REPORT INFORMATION
  Report Type: 
  Country: None (occurrence: None)
  Receive Date: 20110419
  Receipt Date: 20110411
  Transmission Date: 20111010
  Serious: Yes (Hospitalization, Other)
  Sender: FDA-Public Use
  Company Number: B0711899A

PATIENT
  Sex: Male

DRUGS (3)
  1. NOCERTONE [Suspect]
     Indication: EPILEPSY
     Dosage: 60MG TWICE PER DAY
     Route: 064
  2. NEURONTIN [Suspect]
     Indication: EPILEPSY
     Dosage: 800MG TWICE PER DAY
     Route: 064
  3. LAMICTAL [Suspect]
     Indication: EPILEPSY
     Route: 064

REACTIONS (12)
  - DRUG EXPOSURE VIA BREAST MILK [None]
  - DECREASED EYE CONTACT [None]
  - AGITATION [None]
  - PREMATURE BABY [None]
  - ABNORMAL BEHAVIOUR [None]
  - STRABISMUS [None]
  - HYPERMETROPIA [None]
  - CEREBRAL VENTRICLE DILATATION [None]
  - HYPOTONIA [None]
  - RESPIRATORY DISTRESS [None]
  - BRONCHIOLITIS [None]
  - DRUG EXPOSURE DURING PREGNANCY [None]
